FAERS Safety Report 5289600-7 (Version None)
Quarter: 2007Q2

REPORT INFORMATION
  Report Type: 
  Country: None (occurrence: None)
  Receive Date: 20070406
  Receipt Date: 20070330
  Transmission Date: 20071010
  Serious: Yes (Other)
  Sender: FDA-Public Use
  Company Number: 2007UW06354

PATIENT
  Age: 48 Year
  Sex: Female
  Weight: 72.7 kg

DRUGS (8)
  1. SEROQUEL [Suspect]
     Indication: DEPRESSION
     Dates: start: 20010101, end: 20060101
  2. GEODON [Concomitant]
  3. RISPERDAL [Concomitant]
     Dosage: 1 MG TO 2 MG
  4. ZYPREXA [Concomitant]
     Dates: start: 20010101
  5. LITHIUM CARBONATE [Concomitant]
  6. REMERON [Concomitant]
  7. ATARAK [Concomitant]
  8. XANAX [Concomitant]

REACTIONS (13)
  - ANXIETY [None]
  - BLOOD CHOLESTEROL INCREASED [None]
  - DIABETES MELLITUS [None]
  - DIABETIC NEUROPATHY [None]
  - DIARRHOEA [None]
  - HYPERGLYCAEMIA [None]
  - INSOMNIA [None]
  - KNEE OPERATION [None]
  - MASKED FACIES [None]
  - NAUSEA [None]
  - PANIC ATTACK [None]
  - ROTATOR CUFF REPAIR [None]
  - TARDIVE DYSKINESIA [None]
